FAERS Safety Report 10626257 (Version 1)
Quarter: 2014Q4

REPORT INFORMATION
  Report Type: Spontaneous
  Country: NO (occurrence: NO)
  Receive Date: 20141204
  Receipt Date: 20141204
  Transmission Date: 20150529
  Serious: Yes (Hospitalization)
  Sender: FDA-Public Use
  Company Number: NO-ACTAVIS-2014-25795

PATIENT
  Age: 0 Year
  Sex: Male
  Weight: 3 kg

DRUGS (6)
  1. PERSANTIN [Concomitant]
     Active Substance: DIPYRIDAMOLE
     Indication: PRODUCT USED FOR UNKNOWN INDICATION
     Dosage: UNK
     Route: 015
     Dates: start: 2014, end: 2014
  2. FRAGMIN [Concomitant]
     Active Substance: DALTEPARIN SODIUM
     Indication: PRODUCT USED FOR UNKNOWN INDICATION
     Dosage: UNK;THE MOTHER USED FRAGMIN 5000 IU UNTIL PREGNANCY WEEK 37.
     Route: 015
     Dates: start: 2014, end: 2014
  3. PENICILLIN                         /00000901/ [Concomitant]
     Active Substance: PENICILLIN
     Indication: PRODUCT USED FOR UNKNOWN INDICATION
     Dosage: UNK;THE MOTHER RECEIVED ONE DOSE OF PENICILLIN DURING LABOR.; PENICILLIN ACTAVIS
     Route: 015
     Dates: start: 201410, end: 201410
  4. TRAMADOL (UNKNOWN) [Suspect]
     Active Substance: TRAMADOL
     Indication: PRODUCT USED FOR UNKNOWN INDICATION
     Dosage: UNK;THE MOTHER HAD USED TRAMADOL 50 MG X 2-3
     Route: 015
     Dates: start: 2014, end: 2014
  5. ALBYL-E [Concomitant]
     Active Substance: ASPIRIN\MAGNESIUM OXIDE
     Indication: PRODUCT USED FOR UNKNOWN INDICATION
     Dosage: UNK
     Route: 015
     Dates: start: 2014, end: 2014
  6. CLONAZEPAM (UNKNOWN) [Suspect]
     Active Substance: CLONAZEPAM
     Indication: PRODUCT USED FOR UNKNOWN INDICATION
     Dosage: UNK;THE MOTHER NOT SUPPOSED TO USE CLONAZEPAM DURING PREGNANCY, BUT A BLOOD SAMPLE AUGUST 2014 WAS +
     Route: 015

REACTIONS (6)
  - Hypoglycaemia [Recovered/Resolved]
  - Respiratory rate increased [Recovered/Resolved]
  - Foetal exposure during pregnancy [Recovered/Resolved]
  - Oxygen saturation decreased [Recovered/Resolved]
  - Drug withdrawal syndrome neonatal [Recovering/Resolving]
  - Feeding disorder neonatal [Recovered/Resolved]

NARRATIVE: CASE EVENT DATE: 2014
